FAERS Safety Report 10132523 (Version 2)
Quarter: 2014Q2

REPORT INFORMATION
  Report Type: Spontaneous
  Country: DE (occurrence: DE)
  Receive Date: 20140428
  Receipt Date: 20140522
  Transmission Date: 20141212
  Serious: Yes (Life-Threatening)
  Sender: FDA-Public Use
  Company Number: DE-B.I. PHARMACEUTICALS,INC./RIDGEFIELD-2014-BI-18365DE

PATIENT
  Age: 93 Year
  Sex: Male
  Weight: 73 kg

DRUGS (4)
  1. PRADAXA [Suspect]
     Indication: ATRIAL FIBRILLATION
     Dosage: 220 MG
     Route: 048
     Dates: start: 20131122, end: 20140405
  2. TORASEMID [Concomitant]
     Dosage: 10 MG
     Route: 065
  3. OMEPRAZOL [Concomitant]
     Dosage: 20 MG
     Route: 065
  4. SIMVASTATIN [Concomitant]
     Dosage: 40 MG
     Route: 065

REACTIONS (4)
  - Upper gastrointestinal haemorrhage [Recovered/Resolved]
  - Melaena [Recovered/Resolved]
  - Gastrointestinal angiodysplasia [Unknown]
  - Haemoglobin decreased [Recovered/Resolved]
